FAERS Safety Report 8426411-5 (Version None)
Quarter: 2012Q2

REPORT INFORMATION
  Report Type: 
  Country: None (occurrence: None)
  Receive Date: 20120611
  Receipt Date: 20120531
  Transmission Date: 20120825
  Serious: Yes (Other)
  Sender: FDA-Public Use
  Company Number: US-VIROPHARMA INCORPORATED-20120302CINRY2703

PATIENT
  Sex: Female
  Weight: 56.296 kg

DRUGS (3)
  1. MICROGESTIN FE 1.5/30 [Suspect]
     Indication: CONTRACEPTION
     Dosage: 1.5/30 MG-MCG
     Route: 048
     Dates: start: 20100708, end: 20120207
  2. FIRAZYR [Concomitant]
     Indication: HEREDITARY ANGIOEDEMA
     Route: 058
  3. CINRYZE [Suspect]
     Indication: HEREDITARY ANGIOEDEMA
     Dates: start: 20110101, end: 20120124

REACTIONS (6)
  - HEADACHE [None]
  - CHEST DISCOMFORT [None]
  - THROMBOSIS [None]
  - HEMIPARESIS [None]
  - DIZZINESS [None]
  - DYSARTHRIA [None]
